FAERS Safety Report 7028279-0 (Version None)
Quarter: 2010Q4

REPORT INFORMATION
  Report Type: 
  Country: None (occurrence: None)
  Receive Date: 20101005
  Receipt Date: 20100924
  Transmission Date: 20110411
  Serious: Yes (Other)
  Sender: FDA-Public Use
  Company Number: US-PFIZER INC-2010112701

PATIENT
  Sex: Female
  Weight: 95.238 kg

DRUGS (19)
  1. GEODON [Suspect]
     Indication: MANIA
     Dosage: 40 MG, UNK
     Dates: start: 20100826, end: 20100924
  2. GEODON [Suspect]
     Indication: MOOD SWINGS
     Dosage: UNK
     Route: 048
     Dates: start: 20100826, end: 20100924
  3. XANAX [Suspect]
     Indication: SLEEP DISORDER
     Dosage: 0.5 MG, 2X/DAY
  4. EFFEXOR [Suspect]
     Indication: BIPOLAR DISORDER
     Dosage: 150 MG, UNK
     Route: 048
     Dates: start: 19951101
  5. EFFEXOR [Suspect]
     Indication: DEPRESSION
  6. VENLAFAXINE [Suspect]
     Indication: BIPOLAR DISORDER
     Dosage: 150 MG, DAILY
     Route: 048
     Dates: start: 20100722, end: 20100831
  7. VENLAFAXINE [Suspect]
     Indication: DEPRESSION
  8. LITHIUM [Suspect]
     Dosage: 900 MG, UNK
     Dates: start: 19950101
  9. LITHIUM [Suspect]
     Dosage: 325 MG, UNK
     Dates: start: 20090101
  10. LITHIUM [Suspect]
     Dosage: 450 MG, UNK
     Dates: start: 20091201
  11. LEVOTHYROXINE [Suspect]
     Indication: HYPOTHYROIDISM
     Dosage: 0.125 MG, UNK
  12. SYNTHROID [Concomitant]
     Indication: THYROID DISORDER
     Dosage: UNK
  13. VALSARTAN [Concomitant]
     Indication: HYPERTENSION
     Dosage: 80 MG, UNK
  14. LAMICTAL [Concomitant]
     Indication: MOOD SWINGS
     Dosage: UNK
     Dates: start: 20021101
  15. ACTOS [Concomitant]
     Indication: DIABETES MELLITUS
     Dosage: UNK
     Dates: end: 20100809
  16. TRICOR [Concomitant]
     Indication: BLOOD CHOLESTEROL INCREASED
     Dosage: UNK
  17. LIPITOR [Concomitant]
     Indication: BLOOD CHOLESTEROL INCREASED
     Dosage: UNK
  18. PRAVASTATIN [Concomitant]
     Indication: BLOOD CHOLESTEROL INCREASED
     Dosage: UNK
     Dates: start: 20100324
  19. GLUCOPHAGE [Concomitant]
     Dosage: UNK
     Dates: end: 20100812

REACTIONS (22)
  - AGITATION [None]
  - BALANCE DISORDER [None]
  - BLOOD CREATININE INCREASED [None]
  - BLOOD TRIGLYCERIDES INCREASED [None]
  - DEPRESSION [None]
  - DIABETES MELLITUS [None]
  - DRUG LEVEL BELOW THERAPEUTIC [None]
  - FATIGUE [None]
  - FEELING ABNORMAL [None]
  - FEELING JITTERY [None]
  - GLOMERULAR FILTRATION RATE DECREASED [None]
  - HEART RATE INCREASED [None]
  - HYPERSENSITIVITY [None]
  - HYPOTENSION [None]
  - MANIA [None]
  - MENTAL DISORDER [None]
  - MENTAL IMPAIRMENT [None]
  - PANIC ATTACK [None]
  - PERSONALITY DISORDER [None]
  - PRURITUS [None]
  - RENAL FUNCTION TEST ABNORMAL [None]
  - RENAL IMPAIRMENT [None]
